FAERS Safety Report 4827367-4 (Version None)
Quarter: 2005Q4

REPORT INFORMATION
  Report Type: 
  Country: None (occurrence: None)
  Receive Date: 20051114
  Receipt Date: 20050905
  Transmission Date: 20060501
  Serious: Yes (Hospitalization, Other)
  Sender: FDA-Public Use
  Company Number: JP-MERCK-0509USA00739

PATIENT
  Age: 75 Year
  Sex: Female
  Weight: 45 kg

DRUGS (4)
  1. FOSAMAX [Suspect]
     Indication: OSTEOPOROSIS
     Route: 048
     Dates: start: 20050615, end: 20050905
  2. MOBIC [Concomitant]
     Indication: SPINAL OSTEOARTHRITIS
     Route: 048
     Dates: start: 20050525
  3. GASTER [Concomitant]
     Indication: DUODENAL ULCER
     Route: 048
     Dates: start: 20020703
  4. HALCION [Concomitant]
     Indication: INSOMNIA
     Route: 048
     Dates: start: 20030219

REACTIONS (8)
  - BLOOD ALKALINE PHOSPHATASE INCREASED [None]
  - BONE CANCER METASTATIC [None]
  - DECREASED APPETITE [None]
  - HEADACHE [None]
  - HEPATIC CYST [None]
  - HEPATIC STEATOSIS [None]
  - MALAISE [None]
  - MUSCULOSKELETAL CHEST PAIN [None]
